FAERS Safety Report 9921397 (Version 2)
Quarter: 2014Q1

REPORT INFORMATION
  Report Type: Report from Study
  Country: CA (occurrence: CA)
  Receive Date: 20140225
  Receipt Date: 20140305
  Transmission Date: 20141002
  Serious: Yes (Life-Threatening)
  Sender: FDA-Public Use
  Company Number: CA-JNJFOC-20140213239

PATIENT
  Age: 37 Year
  Sex: Female
  Weight: 54.43 kg

DRUGS (2)
  1. STELARA [Suspect]
     Indication: PSORIASIS
     Route: 058
     Dates: start: 20111123, end: 20131202
  2. STELARA [Suspect]
     Indication: PSORIASIS
     Route: 058
     Dates: start: 20110831

REACTIONS (3)
  - Vision blurred [Unknown]
  - Headache [Unknown]
  - Dizziness [Unknown]
